FAERS Safety Report 7631706-9 (Version None)
Quarter: 2011Q3

REPORT INFORMATION
  Report Type: 
  Country: None (occurrence: None)
  Receive Date: 20110725
  Receipt Date: 20110712
  Transmission Date: 20111222
  Serious: Yes (Hospitalization)
  Sender: FDA-Public Use
  Company Number: DE-ELI_LILLY_AND_COMPANY-DE201107003000

PATIENT
  Sex: Female

DRUGS (5)
  1. ASCORBIC ACID [Concomitant]
  2. VITAMIN D [Concomitant]
  3. FORTEO [Suspect]
     Indication: OSTEOPOROSIS
     Dosage: UNK, QD
     Route: 058
     Dates: start: 20090819
  4. CALCIUM CARBONATE [Concomitant]
  5. ANALGESICS [Concomitant]

REACTIONS (3)
  - CONTUSION [None]
  - FALL [None]
  - HAND FRACTURE [None]
